FAERS Safety Report 8843469 (Version 1)
Quarter: 2012Q4

REPORT INFORMATION
  Report Type: 
  Country: US (occurrence: US)
  Receive Date: 20121016
  Receipt Date: 20121016
  Transmission Date: 20130627
  Serious: Yes (Death)
  Sender: FDA-Public Use
  Company Number: US-ROCHE-1131921

PATIENT
  Sex: Male

DRUGS (2)
  1. TNKASE [Suspect]
     Indication: ACUTE MYOCARDIAL INFARCTION
     Route: 065
  2. TNKASE [Suspect]
     Indication: SHOCK

REACTIONS (2)
  - Acute myocardial infarction [Fatal]
  - Haemorrhage [Fatal]
